FAERS Safety Report 8819172 (Version 2)
Quarter: 2012Q4

REPORT INFORMATION
  Report Type: 
  Country: US (occurrence: US)
  Receive Date: 20121001
  Receipt Date: 20121116
  Transmission Date: 20130627
  Serious: Yes (Hospitalization)
  Sender: FDA-Public Use
  Company Number: US-PFIZER INC-2012241344

PATIENT
  Age: 30 Year
  Sex: Female
  Weight: 64.9 kg

DRUGS (3)
  1. ZOLOFT [Suspect]
     Indication: PANIC ATTACKS
     Dosage: 75 mg,daily
     Dates: start: 1996, end: 2005
  2. ZOLOFT [Suspect]
     Indication: ANXIETY
  3. ZOLOFT [Suspect]
     Indication: DEPRESSION

REACTIONS (1)
  - Drug ineffective [Unknown]
